FAERS Safety Report 9301355 (Version 2)
Quarter: 2013Q3

REPORT INFORMATION
  Report Type: Report from Study
  Country: US (occurrence: US)
  Receive Date: 20130521
  Receipt Date: 20130801
  Transmission Date: 20140515
  Serious: Yes (Other)
  Sender: FDA-Public Use
  Company Number: US-TEVA-406374USA

PATIENT
  Age: 28 Year
  Sex: Female

DRUGS (5)
  1. CLARAVIS [Suspect]
     Route: 048
  2. MAXALT [Concomitant]
  3. NEURONTIN [Concomitant]
  4. SEASONIQUE [Concomitant]
  5. ZOMIG [Concomitant]

REACTIONS (2)
  - Suicidal ideation [Unknown]
  - Depression [Recovered/Resolved]
